FAERS Safety Report 15117322 (Version 1)
Quarter: 2018Q3

REPORT INFORMATION
  Report Type: Spontaneous
  Country: JP (occurrence: JP)
  Receive Date: 20180706
  Receipt Date: 20180706
  Transmission Date: 20181010
  Serious: Yes (Other)
  Sender: FDA-Public Use
  Company Number: JP-SUCAMPO PHARMACEUTICALS INC.-SPI201800701

PATIENT
  Age: 8 Decade
  Sex: Female

DRUGS (1)
  1. AMITIZA [Suspect]
     Active Substance: LUBIPROSTONE
     Dosage: UNK

REACTIONS (3)
  - Contraindicated product administered [Unknown]
  - Intestinal obstruction [Unknown]
  - Intestinal operation [Unknown]
